FAERS Safety Report 10099541 (Version 2)
Quarter: 2014Q2

REPORT INFORMATION
  Report Type: Report from Study
  Country: CA (occurrence: CA)
  Receive Date: 20140423
  Receipt Date: 20140522
  Transmission Date: 20141212
  Serious: Yes (Hospitalization)
  Sender: FDA-Public Use
  Company Number: CA-JNJFOC-20140414298

PATIENT
  Sex: Female

DRUGS (2)
  1. REMICADE [Suspect]
     Indication: CROHN^S DISEASE
     Route: 042
     Dates: start: 20121029
  2. MIRENA [Concomitant]
     Route: 065

REACTIONS (3)
  - Device dislocation [Recovered/Resolved]
  - Abdominal pain [Recovering/Resolving]
  - Haemorrhoids [Unknown]
